FAERS Safety Report 14211670 (Version 1)
Quarter: 2017Q4

REPORT INFORMATION
  Report Type: Spontaneous
  Country: US (occurrence: US)
  Receive Date: 20171121
  Receipt Date: 20171121
  Transmission Date: 20180321
  Serious: Yes (Death, Other)
  Sender: FDA-Public Use
  Company Number: US-SAOL THERAPEUTICS-0701213127

PATIENT
  Age: 62 Year
  Sex: Female

DRUGS (1)
  1. BACLOFEN. [Suspect]
     Active Substance: BACLOFEN
     Indication: MUSCLE SPASTICITY
     Dosage: 35.59 ?G, \DAY
     Route: 037
     Dates: start: 20150820

REACTIONS (3)
  - Death [Fatal]
  - Unresponsive to stimuli [None]
  - Device failure [Unknown]

NARRATIVE: CASE EVENT DATE: 20160125
